FAERS Safety Report 10541062 (Version 1)
Quarter: 2014Q4

REPORT INFORMATION
  Report Type: Spontaneous
  Country: US (occurrence: None)
  Receive Date: 20141023
  Receipt Date: 20141023
  Transmission Date: 20150529
  Serious: Yes (Disabling)
  Sender: FDA-Public Use
  Company Number: None

PATIENT
  Age: 50 Year
  Sex: Female

DRUGS (1)
  1. ALLERGY RELIEF CETIRINE HCL TABLETS, 10 MG ANTHISTAMINE/ALLERGY RITE AID [Suspect]
     Active Substance: CETIRIZINE HYDROCHLORIDE
     Indication: MULTIPLE ALLERGIES
     Dosage: 10 MG 1 PILL ONCE A DAY ORAL
     Route: 048
     Dates: start: 201403, end: 20141005

REACTIONS (9)
  - Ear pain [None]
  - Depression [None]
  - Sneezing [None]
  - Insomnia [None]
  - Back pain [None]
  - Urticaria [None]
  - Mood swings [None]
  - Drug withdrawal syndrome [None]
  - Eye pruritus [None]

NARRATIVE: CASE EVENT DATE: 20140923
